FAERS Safety Report 8580677-X (Version None)
Quarter: 2012Q3

REPORT INFORMATION
  Report Type: 
  Country: None (occurrence: None)
  Receive Date: 20120809
  Receipt Date: 20120730
  Transmission Date: 20120928
  Serious: No
  Sender: FDA-Public Use
  Company Number: US-BIOGENIDEC-2012BI005887

PATIENT
  Age: 37 Year
  Sex: Male

DRUGS (2)
  1. TYSABRI [Suspect]
     Indication: MULTIPLE SCLEROSIS
     Route: 042
     Dates: start: 20080610, end: 20091022
  2. TYSABRI [Suspect]
     Route: 042
     Dates: start: 20110518, end: 20111028

REACTIONS (5)
  - COUGH [None]
  - HAEMOPTYSIS [None]
  - CHEST PAIN [None]
  - WEIGHT DECREASED [None]
  - LUNG DISORDER [None]
